FAERS Safety Report 5801953-7 (Version None)
Quarter: 2008Q3

REPORT INFORMATION
  Report Type: 
  Country: None (occurrence: None)
  Receive Date: 20080702
  Receipt Date: 20080618
  Transmission Date: 20090109
  Serious: Yes (Other)
  Sender: FDA-Public Use
  Company Number: SPI200800304

PATIENT
  Age: 47 Year
  Sex: Female

DRUGS (4)
  1. AMITIZA [Suspect]
     Indication: CONSTIPATION
     Dosage: 24 MCG, BID, ORAL
     Route: 048
  2. PREMARIN [Concomitant]
  3. PROVENTIL (SALBUTAMOL) [Concomitant]
  4. LISINOPRIL [Concomitant]

REACTIONS (2)
  - CONVULSION [None]
  - SYNCOPE [None]
